FAERS Safety Report 8784232 (Version 2)
Quarter: 2012Q4

REPORT INFORMATION
  Report Type: 
  Country: US (occurrence: US)
  Receive Date: 20120913
  Receipt Date: 20121018
  Transmission Date: 20130627
  Serious: No
  Sender: FDA-Public Use
  Company Number: US-VERTEX PHARMACEUTICAL INC.-AE-2012-008928

PATIENT
  Age: 41 Year
  Sex: Female
  Weight: 93 kg

DRUGS (8)
  1. VX-950 [Suspect]
     Indication: HEPATITIS C
     Dosage: 750 mg, tid
     Route: 048
  2. RIBAVIRIN [Suspect]
     Indication: HEPATITIS C
     Dosage: 200 mg, UNK
  3. PEGASYS [Suspect]
     Indication: HEPATITIS C
     Dosage: 180 ?g, UNK
  4. TOPAMAX [Concomitant]
     Dosage: 25 mg, UNK
  5. SYNTHROID [Concomitant]
     Dosage: 50 ?g, UNK
  6. IMITREX                            /01044801/ [Concomitant]
     Dosage: 50 mg, UNK
  7. VITAMIN C POW EFFERV [Concomitant]
  8. VITAMIN D /00107901/ [Concomitant]
     Dosage: 1000 ut, UNK

REACTIONS (8)
  - White blood cell count decreased [Unknown]
  - Visual impairment [Unknown]
  - Headache [Unknown]
  - Fatigue [Unknown]
  - Rash [Unknown]
  - Drug ineffective [Unknown]
  - Red blood cell count decreased [Unknown]
  - Nausea [Unknown]
